FAERS Safety Report 6234066-3 (Version None)
Quarter: 2009Q2

REPORT INFORMATION
  Report Type: 
  Country: None (occurrence: None)
  Receive Date: 20090618
  Receipt Date: 20090609
  Transmission Date: 20091009
  Serious: Yes (Hospitalization)
  Sender: FDA-Public Use
  Company Number: FR-BIOGENIDEC-2008BI029001

PATIENT
  Age: 30 Year
  Sex: Female
  Weight: 47 kg

DRUGS (3)
  1. TYSABRI [Suspect]
     Indication: MULTIPLE SCLEROSIS
     Route: 042
     Dates: start: 20080403
  2. LYRICA [Concomitant]
     Indication: PAIN
     Route: 048
     Dates: start: 20080101
  3. CLONAZEPAM [Concomitant]
     Indication: PAIN
     Route: 048
     Dates: start: 20080101

REACTIONS (2)
  - PNEUMONIA KLEBSIELLA [None]
  - PYELONEPHRITIS [None]
